FAERS Safety Report 10235661 (Version 1)
Quarter: 2014Q1

REPORT INFORMATION
  Report Type: Spontaneous
  Country: US (occurrence: None)
  Receive Date: 20140306
  Receipt Date: 20140306
  Transmission Date: 20141002
  Serious: Yes (Other)
  Sender: FDA-Public Use
  Company Number: 163-21880-13023439

PATIENT
  Age: 62 Year
  Sex: Male
  Weight: 90.99 kg

DRUGS (14)
  1. REVLIMID [Suspect]
     Indication: PLASMA CELL MYELOMA
     Route: 048
     Dates: start: 20120420
  2. OXYCODONE HCL (OXYCODONE HYDROCHLORIDE) (15 MILLIGRAM, CAPSULES) [Concomitant]
     Route: 048
     Dates: start: 20120420
  3. FENTANYL (FENTANYL) (UNKNOWN) (FENTANYL) [Concomitant]
  4. VELCADE (BORTEZOMIB) (UNKNOWN) [Concomitant]
  5. GABAPENTIN (GABAPENTIN) TABLETS [Concomitant]
  6. CYMBALTA [Concomitant]
  7. ACYCLOVIR (ACICLOVIR) (TABLETS) [Concomitant]
  8. MULTIVITAMINS (MULTIVITAMINS) (UNKNOWN) [Concomitant]
  9. NEUPOGEN (FILGRASTIM) (UNKNOWN) [Concomitant]
  10. LORAZEPAM (LORAZEPAM) (TABLETS) [Concomitant]
  11. ACIPHEX (RABEPRAZOLE SODIUM) (TABLETS) [Concomitant]
  12. ANDRODERM (POULTICE OR PATCH) [Concomitant]
  13. AZOR (ALPRAZOLAM) (TABLETS) [Concomitant]
  14. ALLOPURINOL (ALLOPURINOL) (TABLETS) [Concomitant]

REACTIONS (11)
  - Infected dermal cyst [None]
  - Red blood cell count decreased [None]
  - Bronchitis [None]
  - Hypercalcaemia [None]
  - Joint swelling [None]
  - Multiple allergies [None]
  - Arthralgia [None]
  - Fatigue [None]
  - Pruritus [None]
  - Platelet count decreased [None]
  - Full blood count decreased [None]
